FAERS Safety Report 25133853 (Version 3)
Quarter: 2025Q2

REPORT INFORMATION
  Report Type: Report from Study
  Country: US (occurrence: US)
  Receive Date: 20250328
  Receipt Date: 20250615
  Transmission Date: 20250716
  Serious: Yes (Other)
  Sender: ABBVIE
  Company Number: US-ABBVIE-6198047

PATIENT
  Age: 68 Year
  Sex: Male

DRUGS (2)
  1. CREON [Suspect]
     Active Substance: PANCRELIPASE AMYLASE\PANCRELIPASE LIPASE\PANCRELIPASE PROTEASE
     Indication: Pancreatic failure
     Dosage: 1 TABLET PER DAY
     Route: 048
     Dates: start: 20241120
  2. CREON [Suspect]
     Active Substance: PANCRELIPASE AMYLASE\PANCRELIPASE LIPASE\PANCRELIPASE PROTEASE
     Indication: Pancreatic failure
     Dosage: 2 TABLET PER DAY
     Route: 048
     Dates: start: 2025

REACTIONS (5)
  - Chemotherapy [Unknown]
  - Asthenia [Unknown]
  - Pain [Unknown]
  - Proctitis [Unknown]
  - White blood cell count decreased [Unknown]
